FAERS Safety Report 24319692 (Version 3)
Quarter: 2025Q3

REPORT INFORMATION
  Report Type: Spontaneous
  Country: US (occurrence: US)
  Receive Date: 20240914
  Receipt Date: 20250814
  Transmission Date: 20251020
  Serious: Yes (Other)
  Sender: SANOFI AVENTIS
  Company Number: US-SA-2024SA262830

PATIENT
  Sex: Male

DRUGS (2)
  1. DUPIXENT [Suspect]
     Active Substance: DUPILUMAB
     Indication: Dermatitis allergic
     Dosage: 300 MG, QOW
     Route: 058
     Dates: start: 2021
  2. TRAZODONE HCL [Concomitant]
     Active Substance: TRAZODONE HYDROCHLORIDE

REACTIONS (8)
  - Prostate cancer [Unknown]
  - Eye symptom [Unknown]
  - Lacrimation increased [Unknown]
  - Eyelid margin crusting [Unknown]
  - Eye pain [Unknown]
  - Allergic sinusitis [Unknown]
  - Hot flush [Unknown]
  - Eye pruritus [Unknown]
